FAERS Safety Report 13639862 (Version 1)
Quarter: 2017Q2

REPORT INFORMATION
  Report Type: Spontaneous
  Country: US (occurrence: US)
  Receive Date: 20170609
  Receipt Date: 20170609
  Transmission Date: 20170830
  Serious: No
  Sender: FDA-Public Use
  Company Number: US-ROCHE-660969

PATIENT
  Sex: Male

DRUGS (4)
  1. KLONOPIN [Suspect]
     Active Substance: CLONAZEPAM
     Indication: SLEEP DISORDER THERAPY
     Route: 048
  2. KLONOPIN [Suspect]
     Active Substance: CLONAZEPAM
     Route: 048
  3. KLONOPIN [Suspect]
     Active Substance: CLONAZEPAM
     Dosage: 6/8TH OF TABLET
     Route: 048
  4. KLONOPIN [Suspect]
     Active Substance: CLONAZEPAM
     Dosage: 7/8 TH OF TABLET
     Route: 048

REACTIONS (2)
  - Anxiety [Unknown]
  - Tremor [Unknown]
